FAERS Safety Report 11428852 (Version 1)
Quarter: 2015Q3

REPORT INFORMATION
  Report Type: Spontaneous
  Country: US (occurrence: US)
  Receive Date: 20150828
  Receipt Date: 20150828
  Transmission Date: 20151125
  Serious: No
  Sender: FDA-Public Use
  Company Number: US-ROCHE-655839

PATIENT
  Age: 61 Year
  Sex: Male

DRUGS (2)
  1. COPEGUS [Suspect]
     Active Substance: RIBAVIRIN
     Indication: HEPATITIS C
     Dosage: FORM: PILLS, LENGTH OF TREATMENT: SIX MONTHS
     Route: 065
     Dates: start: 20080901, end: 20090301
  2. PEGASYS [Suspect]
     Active Substance: PEGINTERFERON ALFA-2A
     Indication: HEPATITIS C
     Dosage: FORM: PRE-FILLED SYRINGE; LENGTH OF TREATMENT: SIX MONTHS
     Route: 065
     Dates: start: 20080901, end: 20090301

REACTIONS (6)
  - Dental caries [Not Recovered/Not Resolved]
  - Tooth fracture [Unknown]
  - Tooth disorder [Unknown]
  - Onychoclasis [Not Recovered/Not Resolved]
  - Dental caries [Unknown]
  - Mouth injury [Unknown]

NARRATIVE: CASE EVENT DATE: 20080921
